FAERS Safety Report 4488099-8 (Version None)
Quarter: 2004Q4

REPORT INFORMATION
  Report Type: 
  Country: None (occurrence: None)
  Receive Date: 20041028
  Receipt Date: 20041006
  Transmission Date: 20050328
  Serious: Yes (Other)
  Sender: FDA-Public Use
  Company Number: DE-GLAXOSMITHKLINE-D0044880A

PATIENT
  Sex: Male

DRUGS (1)
  1. AUGMENTIN '250' [Suspect]
     Indication: URINARY TRACT INFECTION BACTERIAL
     Route: 065
     Dates: start: 20040807

REACTIONS (15)
  - BLOOD BILIRUBIN INCREASED [None]
  - CHILLS [None]
  - CHROMATURIA [None]
  - CONSTIPATION [None]
  - DEPRESSION [None]
  - DIARRHOEA [None]
  - EXANTHEM [None]
  - FAECES DISCOLOURED [None]
  - FATIGUE [None]
  - GAMMA-GLUTAMYLTRANSFERASE INCREASED [None]
  - OCULAR ICTERUS [None]
  - PRURITUS [None]
  - SLEEP DISORDER [None]
  - TRANSAMINASES INCREASED [None]
  - WEIGHT DECREASED [None]
